FAERS Safety Report 7468954-7 (Version None)
Quarter: 2011Q2

REPORT INFORMATION
  Report Type: 
  Country: None (occurrence: None)
  Receive Date: 20110429
  Receipt Date: 20110418
  Transmission Date: 20111010
  Serious: Yes (Hospitalization, Disabling)
  Sender: FDA-Public Use
  Company Number: 2010SP046935

PATIENT
  Age: 40 Year
  Sex: Female
  Weight: 101.6057 kg

DRUGS (9)
  1. COUMADIN [Suspect]
     Indication: PULMONARY EMBOLISM
     Dates: start: 20080920, end: 20100701
  2. FLOVENT [Concomitant]
  3. PROZAC [Concomitant]
  4. ZYRTEC [Concomitant]
  5. CALCIUM CARBONATE [Concomitant]
  6. NUVARING [Suspect]
     Indication: PREMENSTRUAL SYNDROME
     Dates: start: 20070301, end: 20080915
  7. ZEGERID [Concomitant]
  8. ALBUTEROL [Concomitant]
  9. SINGULAIR [Concomitant]

REACTIONS (23)
  - TOOTH ABSCESS [None]
  - GASTRITIS [None]
  - GASTROOESOPHAGEAL REFLUX DISEASE [None]
  - GASTRIC POLYPS [None]
  - WHEEZING [None]
  - RECTAL HAEMORRHAGE [None]
  - PULMONARY EMBOLISM [None]
  - CELLULITIS [None]
  - ARTHROPATHY [None]
  - PITYRIASIS [None]
  - BACK PAIN [None]
  - PATELLOFEMORAL PAIN SYNDROME [None]
  - PULMONARY INFARCTION [None]
  - HAEMORRHAGE [None]
  - PSORIASIS [None]
  - JOINT SWELLING [None]
  - BURSITIS [None]
  - ANXIETY [None]
  - DUODENITIS [None]
  - ACTIVATED PARTIAL THROMBOPLASTIN TIME PROLONGED [None]
  - MUSCULOSKELETAL STIFFNESS [None]
  - OEDEMA PERIPHERAL [None]
  - PLEURAL EFFUSION [None]
